FAERS Safety Report 11470396 (Version 5)
Quarter: 2016Q1

REPORT INFORMATION
  Report Type: Spontaneous
  Country: US (occurrence: US)
  Receive Date: 20150908
  Receipt Date: 20160329
  Transmission Date: 20160525
  Serious: Yes (Other)
  Sender: FDA-Public Use
  Company Number: US-OTSUKA-2015_008708

PATIENT
  Sex: Male

DRUGS (3)
  1. ZYPREXA ZYDIZ [Concomitant]
     Active Substance: OLANZAPINE
     Indication: SCHIZOPHRENIA
     Dosage: UNK
     Route: 065
  2. ABILIFY MAINTENA [Suspect]
     Active Substance: ARIPIPRAZOLE
     Indication: DEPRESSION
     Dosage: 400 MG, EVERY 24 DAYS
     Route: 030
     Dates: start: 2015
  3. ABILIFY MAINTENA [Suspect]
     Active Substance: ARIPIPRAZOLE
     Indication: BIPOLAR DISORDER

REACTIONS (13)
  - Large intestine polyp [Unknown]
  - Diarrhoea [Not Recovered/Not Resolved]
  - Dysstasia [Recovered/Resolved]
  - Eating disorder [Unknown]
  - Hypotension [Recovered/Resolved]
  - Insomnia [Unknown]
  - Headache [Recovered/Resolved]
  - Haemorrhoids [Not Recovered/Not Resolved]
  - Inappropriate schedule of drug administration [Unknown]
  - Off label use [Unknown]
  - Vomiting [Recovered/Resolved]
  - Nausea [Recovered/Resolved]
  - Injection site pain [Recovered/Resolved]

NARRATIVE: CASE EVENT DATE: 2015
